FAERS Safety Report 20832650 (Version 2)
Quarter: 2022Q2

REPORT INFORMATION
  Report Type: Spontaneous
  Country: GB (occurrence: GB)
  Receive Date: 20220516
  Receipt Date: 20220526
  Transmission Date: 20220721
  Serious: Yes (Death, Other)
  Sender: FDA-Public Use
  Company Number: GB-MYLANLABS-2022M1035374

PATIENT
  Sex: Male

DRUGS (1)
  1. CLOZARIL [Suspect]
     Active Substance: CLOZAPINE
     Indication: Schizophrenia
     Dosage: 50 MILLIGRAM, BID (50 MG, BD)
     Route: 048
     Dates: start: 20010205

REACTIONS (2)
  - Metastatic neoplasm [Fatal]
  - Medullary thyroid cancer [Unknown]

NARRATIVE: CASE EVENT DATE: 20200901
